FAERS Safety Report 9472817 (Version 2)
Quarter: 2013Q3

REPORT INFORMATION
  Report Type: Report from Study
  Country: AR (occurrence: AR)
  Receive Date: 20130823
  Receipt Date: 20130823
  Transmission Date: 20140515
  Serious: Yes (Hospitalization)
  Sender: FDA-Public Use
  Company Number: PHHO2009AR14533

PATIENT
  Age: 61 Year
  Sex: Male
  Weight: 86 kg

DRUGS (9)
  1. ALISKIREN [Suspect]
     Indication: CARDIOVASCULAR DISORDER
     Route: 048
     Dates: start: 20090407
  2. ENALAPRIL [Concomitant]
     Indication: HYPERTENSION
  3. FUROSEMIDE [Concomitant]
     Indication: HYPERTENSION
  4. ISOSORBIDE MONONITRATE [Concomitant]
     Indication: ISCHAEMIC CARDIOMYOPATHY
  5. NITROGLYCERIN [Concomitant]
     Indication: CORONARY ARTERY DISEASE
     Dosage: 10
     Route: 048
  6. LOW-SODIUM DIET [Concomitant]
  7. INSULIN [Concomitant]
     Indication: DIABETES MELLITUS
     Dosage: 60 IU, UNK
     Route: 058
  8. BISOPROLOL [Concomitant]
     Dosage: 5 UNK, UNK
     Route: 048
  9. ATORVASTATIN [Concomitant]
     Indication: HYPERCHOLESTEROLAEMIA
     Dosage: 10 UNK, UNK
     Route: 048

REACTIONS (3)
  - Syncope [Recovered/Resolved]
  - Hypotension [Recovered/Resolved]
  - Renal failure acute [Recovered/Resolved]
